FAERS Safety Report 12601311 (Version 2)
Quarter: 2016Q3

REPORT INFORMATION
  Report Type: Report from Study
  Country: IL (occurrence: IL)
  Receive Date: 20160728
  Receipt Date: 20160826
  Transmission Date: 20161109
  Serious: Yes (Other)
  Sender: FDA-Public Use
  Company Number: IL-TEVA-678667ACC

PATIENT
  Age: 53 Year
  Sex: Male

DRUGS (11)
  1. FAMPYRA [Concomitant]
     Active Substance: DALFAMPRIDINE
     Dosage: 20 MILLIGRAM DAILY;
     Dates: start: 2014
  2. VABEN [Concomitant]
     Active Substance: OXAZEPAM
     Dates: start: 2014
  3. SOTALOL. [Concomitant]
     Active Substance: SOTALOL
     Dates: start: 2013
  4. URSOLIT [Concomitant]
     Dates: start: 2012
  5. CARDILOC [Concomitant]
     Active Substance: BISOPROLOL FUMARATE
     Dates: start: 2011
  6. BACLOSAL [Concomitant]
     Dates: start: 2014
  7. COPAXONE [Suspect]
     Active Substance: GLATIRAMER ACETATE
     Indication: MULTIPLE SCLEROSIS
     Dosage: 40 MG/ML
     Route: 058
     Dates: start: 20160515, end: 20160721
  8. PROVIGIL [Concomitant]
     Active Substance: MODAFINIL
     Dates: start: 2015
  9. CLEXANE [Concomitant]
     Active Substance: ENOXAPARIN SODIUM
     Dates: start: 2011
  10. TAMBOCOR [Concomitant]
     Active Substance: FLECAINIDE ACETATE
     Dosage: 200 MILLIGRAM DAILY;
     Dates: start: 2007
  11. VECTOR [Concomitant]
     Dates: start: 2012

REACTIONS (6)
  - Influenza like illness [Recovered/Resolved]
  - Chills [Recovered/Resolved]
  - Condition aggravated [Recovered/Resolved]
  - Off label use [Unknown]
  - Myalgia [Recovered/Resolved]
  - Asthenia [Recovered/Resolved]

NARRATIVE: CASE EVENT DATE: 20160714
